FAERS Safety Report 18502568 (Version 4)
Quarter: 2021Q1

REPORT INFORMATION
  Report Type: Spontaneous
  Country: US (occurrence: US)
  Receive Date: 20201113
  Receipt Date: 20210317
  Transmission Date: 20210419
  Serious: Yes (Hospitalization, Other)
  Sender: FDA-Public Use
  Company Number: US-CATALYST PHARMACEUTICALS, INC-2020CAT00561

PATIENT
  Age: 72 Year
  Sex: Male
  Weight: 105.67 kg

DRUGS (20)
  1. FIRDAPSE [Suspect]
     Active Substance: AMIFAMPRIDINE PHOSPHATE
     Dosage: 10 MG, 3X/DAY
     Route: 048
     Dates: start: 2020, end: 2020
  2. FIRDAPSE [Suspect]
     Active Substance: AMIFAMPRIDINE PHOSPHATE
     Dosage: ^TITRATING^
     Route: 048
     Dates: start: 2020
  3. LISINOPRIL. [Concomitant]
     Active Substance: LISINOPRIL
     Dosage: UNK
  4. ROSUVASTATIN. [Concomitant]
     Active Substance: ROSUVASTATIN
     Dosage: UNK
  5. PROAIR HFA [Concomitant]
     Active Substance: ALBUTEROL SULFATE
  6. VITAMIN D3 [Concomitant]
     Active Substance: CHOLECALCIFEROL
  7. GLUCOSAMINE AND CHONDROITIN [Concomitant]
     Active Substance: CHONDROITIN SULFATE (BOVINE)\GLUCOSAMINE HYDROCHLORIDE
  8. TRELEGY ELLIPTA [Concomitant]
     Active Substance: FLUTICASONE FUROATE\UMECLIDINIUM BROMIDE\VILANTEROL TRIFENATATE
     Dosage: UNK, 1X/DAY
  9. FIRDAPSE [Suspect]
     Active Substance: AMIFAMPRIDINE PHOSPHATE
     Indication: MYASTHENIC SYNDROME
     Dosage: 5 MG, 3X/DAY
     Route: 048
     Dates: start: 20201027, end: 2020
  10. MESTINON [Concomitant]
     Active Substance: PYRIDOSTIGMINE BROMIDE
     Dosage: 3 TABLETS, 1X/DAY
  11. PYRIDOSTIGMINE [Concomitant]
     Active Substance: PYRIDOSTIGMINE
     Dosage: 60 MG, 1X/DAY
  12. FIRDAPSE [Suspect]
     Active Substance: AMIFAMPRIDINE PHOSPHATE
     Dosage: 20 MG, 3X/DAY
     Route: 048
     Dates: start: 20201203
  13. FIRDAPSE [Suspect]
     Active Substance: AMIFAMPRIDINE PHOSPHATE
     Dosage: 10 MG, IN MORNING AND EVENING
     Route: 048
     Dates: start: 2020, end: 2020
  14. BREO ELLIPTA [Suspect]
     Active Substance: FLUTICASONE FUROATE\VILANTEROL TRIFENATATE
     Indication: DYSPNOEA
     Dosage: UNK, DAILY
  15. METOPROLOL. [Concomitant]
     Active Substance: METOPROLOL
     Dosage: 25 MG, 1X/DAY
  16. METOPROLOL. [Concomitant]
     Active Substance: METOPROLOL
     Dosage: 2 TABLETS, DAILY
  17. CENTRUM SILVER [Concomitant]
     Active Substance: MINERALS\VITAMINS
  18. FIRDAPSE [Suspect]
     Active Substance: AMIFAMPRIDINE PHOSPHATE
     Dosage: 5 MG, IN THE AFTERNOON
     Route: 048
     Dates: start: 2020, end: 2020
  19. METOPROLOL. [Concomitant]
     Active Substance: METOPROLOL
     Dosage: 50 MG, 2X/DAY
  20. MESTINON [Concomitant]
     Active Substance: PYRIDOSTIGMINE BROMIDE
     Dosage: 1 TABLETS, 1X/DAY

REACTIONS (9)
  - Atrial fibrillation [Unknown]
  - Mitral perforation [Unknown]
  - Abdominal discomfort [Unknown]
  - Dyspnoea [Not Recovered/Not Resolved]
  - Paraesthesia oral [Not Recovered/Not Resolved]
  - Surgical failure [Unknown]
  - Pulmonary fibrosis [Not Recovered/Not Resolved]
  - Therapeutic product effect incomplete [Not Recovered/Not Resolved]
  - Diarrhoea [Recovered/Resolved]

NARRATIVE: CASE EVENT DATE: 2020
